FAERS Safety Report 25851627 (Version 1)
Quarter: 2025Q3

REPORT INFORMATION
  Report Type: Spontaneous
  Country: NP (occurrence: NP)
  Receive Date: 20250926
  Receipt Date: 20250926
  Transmission Date: 20251020
  Serious: Yes (Other)
  Sender: RANBAXY
  Company Number: NP-SUN PHARMACEUTICAL INDUSTRIES INC-2025RR-528292

PATIENT
  Age: 58 Year
  Sex: Male

DRUGS (2)
  1. PREDNISONE [Suspect]
     Active Substance: PREDNISONE
     Indication: Acute kidney injury
     Route: 065
  2. PREDNISONE [Suspect]
     Active Substance: PREDNISONE
     Indication: Anti-neutrophil cytoplasmic antibody positive vasculitis

REACTIONS (3)
  - Cardiotoxicity [Unknown]
  - Enzyme induction [Unknown]
  - Metabolic disorder [Unknown]
